FAERS Safety Report 8048862-3 (Version None)
Quarter: 2012Q1

REPORT INFORMATION
  Report Type: 
  Country: None (occurrence: None)
  Receive Date: 20120117
  Receipt Date: 20120103
  Transmission Date: 20120608
  Serious: No
  Sender: FDA-Public Use
  Company Number: US-ROXANE LABORATORIES, INC.-2012-RO-00447RO

PATIENT
  Sex: Male

DRUGS (4)
  1. CALCIUM ACETATE [Suspect]
     Indication: CALCIUM PHOSPHATE PRODUCT
     Dosage: 4002 MG
     Route: 048
     Dates: start: 20110318, end: 20111220
  2. CHEMOTHERAPY [Concomitant]
     Indication: PROSTATE CANCER
  3. CHEMOTHERAPY [Concomitant]
     Indication: URETHRAL CANCER
  4. CHEMOTHERAPY [Concomitant]
     Indication: BLADDER CANCER

REACTIONS (3)
  - NAUSEA [None]
  - DECREASED APPETITE [None]
  - VOMITING [None]
